FAERS Safety Report 6169531-0 (Version None)
Quarter: 2009Q2

REPORT INFORMATION
  Report Type: 
  Country: None (occurrence: None)
  Receive Date: 20090428
  Receipt Date: 20090422
  Transmission Date: 20091009
  Serious: Yes (Other)
  Sender: FDA-Public Use
  Company Number: US-JNJFOC-20090405505

PATIENT
  Sex: Female

DRUGS (1)
  1. ORTHO CYCLEN-28 [Suspect]
     Indication: CONTRACEPTION
     Route: 048

REACTIONS (2)
  - IRITIS [None]
  - UVEITIS [None]
